FAERS Safety Report 4277572-3 (Version None)
Quarter: 2004Q1

REPORT INFORMATION
  Report Type: 
  Country: None (occurrence: None)
  Receive Date: 20040121
  Receipt Date: 20040121
  Transmission Date: 20041129
  Serious: Yes (Hospitalization)
  Sender: FDA-Public Use
  Company Number: None

PATIENT
  Age: 61 Year
  Sex: Male

DRUGS (13)
  1. BENICAR [Suspect]
     Indication: HYPERTENSION
     Dosage: 5 MG PO QD
     Route: 048
     Dates: start: 20031001
  2. METFORMIN HCL [Concomitant]
  3. ROSIGLITAZONE MALEATE [Concomitant]
  4. ATENOLOL [Concomitant]
  5. SIMVASTATIN [Concomitant]
  6. FENOFIBRATE [Concomitant]
  7. ESOMEPRAZOLE [Concomitant]
  8. MECLIZINE [Concomitant]
  9. HYDROCHLOROTHIAZIDE [Concomitant]
  10. ALBUTEROL/ATROVENT [Concomitant]
  11. BENADRYL [Concomitant]
  12. PEPCID [Concomitant]
  13. SOLU-MEDROL [Concomitant]

REACTIONS (4)
  - ABDOMINAL PAIN LOWER [None]
  - ANGIONEUROTIC OEDEMA [None]
  - PAIN [None]
  - URINARY RETENTION [None]
